FAERS Safety Report 12856413 (Version 1)
Quarter: 2016Q4

REPORT INFORMATION
  Report Type: Spontaneous
  Country: US (occurrence: US)
  Receive Date: 20161018
  Receipt Date: 20161018
  Transmission Date: 20170207
  Serious: Yes (Death)
  Sender: FDA-Public Use
  Company Number: US-CIPLA LTD.-2016US19409

PATIENT

DRUGS (5)
  1. OLANZAPINE. [Suspect]
     Active Substance: OLANZAPINE
     Indication: AGITATION
     Dosage: 20 MG, 2 INJECTIONS OF 10 MG OVER A 9-HOUR PERIOD
     Route: 030
  2. ZUCLOPENTHIXOL ACETATE [Suspect]
     Active Substance: ZUCLOPENTHIXOL ACETATE
     Indication: DEMENTIA ALZHEIMER^S TYPE
     Dosage: 50 MG, UNK
     Route: 065
  3. MIRTAZAPINE. [Suspect]
     Active Substance: MIRTAZAPINE
     Indication: DEMENTIA ALZHEIMER^S TYPE
     Dosage: 30 MG, UNK
     Route: 065
  4. DEPOT ZUCLOPENTHIXOL [Suspect]
     Active Substance: ZUCLOPENTHIXOL
     Indication: DEMENTIA ALZHEIMER^S TYPE
     Dosage: UNK
     Route: 065
  5. DIAZEPAM. [Suspect]
     Active Substance: DIAZEPAM
     Indication: DEMENTIA ALZHEIMER^S TYPE
     Dosage: 10 MG, UNK
     Route: 065

REACTIONS (1)
  - Cardio-respiratory arrest [Fatal]
